FAERS Safety Report 6185550-2 (Version None)
Quarter: 2009Q2

REPORT INFORMATION
  Report Type: 
  Country: None (occurrence: None)
  Receive Date: 20090507
  Receipt Date: 20090428
  Transmission Date: 20091009
  Serious: Yes (Disabling)
  Sender: FDA-Public Use
  Company Number: FRP09000293

PATIENT
  Age: 76 Year
  Sex: Female

DRUGS (2)
  1. DIDRONEL [Suspect]
     Indication: OSTEOPOROSIS
     Dosage: ORAL
     Route: 048
     Dates: start: 19980101, end: 20060101
  2. BONIVA [Suspect]
     Indication: OSTEOPOROSIS
     Dates: start: 20080101

REACTIONS (4)
  - BREAST CANCER [None]
  - OSTEOLYSIS [None]
  - OSTEONECROSIS [None]
  - TOOTH DISORDER [None]
